FAERS Safety Report 18106637 (Version 1)
Quarter: 2020Q3

REPORT INFORMATION
  Report Type: Spontaneous
  Country: US (occurrence: US)
  Receive Date: 20200803
  Receipt Date: 20200803
  Transmission Date: 20201103
  Serious: Yes (Hospitalization)
  Sender: FDA-Public Use
  Company Number: US-NANJING KING-FRIEND BIOCHEMICAL PHARMACEUTICAL CO. LTD.-2020NKF00025

PATIENT
  Age: 39 Year
  Sex: Male

DRUGS (3)
  1. NAB?PACLITAXEL [Concomitant]
     Active Substance: PACLITAXEL
     Indication: PANCREATIC CARCINOMA
     Dosage: 125 MG/M2 ON DAYS 1,8, AND 15 OF A 28?DAY CYCLE
     Route: 065
  2. IMMUNE CHECKPOINT INHIBITOR [Concomitant]
  3. GEMCITABINE. [Suspect]
     Active Substance: GEMCITABINE
     Indication: PANCREATIC CARCINOMA
     Dosage: 1000 MG/M2 ON DAYS 1,8, AND 15 OF A 28?DAY CYCLE

REACTIONS (1)
  - Thrombotic microangiopathy [Recovered/Resolved]
